FAERS Safety Report 8008889-4 (Version None)
Quarter: 2011Q4

REPORT INFORMATION
  Report Type: 
  Country: None (occurrence: None)
  Receive Date: 20111221
  Receipt Date: 20111212
  Transmission Date: 20120403
  Serious: Yes (Other)
  Sender: FDA-Public Use
  Company Number: CH-007142

PATIENT
  Sex: Male

DRUGS (4)
  1. NORVASC [Concomitant]
  2. DEGARELIX (FIRMAGON) 80 MG [Suspect]
     Indication: PROSTATE CANCER
     Dosage: (SUBCUTANEOUS)
     Route: 058
     Dates: end: 20111111
  3. INDERAL [Concomitant]
  4. NEXIUM [Concomitant]

REACTIONS (4)
  - HEART RATE INCREASED [None]
  - ATRIAL FIBRILLATION [None]
  - ELECTROCARDIOGRAM QT PROLONGED [None]
  - HEART RATE DECREASED [None]
